FAERS Safety Report 5693455-6 (Version None)
Quarter: 2008Q2

REPORT INFORMATION
  Report Type: 
  Country: None (occurrence: None)
  Receive Date: 20080401
  Receipt Date: 20080401
  Transmission Date: 20081010
  Serious: No
  Sender: FDA-Public Use
  Company Number: None

PATIENT
  Age: 46 Year
  Sex: Male
  Weight: 124.7392 kg

DRUGS (1)
  1. HYDROMORPHONE HCL [Suspect]
     Indication: HEMIPARESIS
     Dosage: 2MG  Q4H  IV
     Route: 042
     Dates: start: 20080124, end: 20080124

REACTIONS (1)
  - PRURITUS [None]
